FAERS Safety Report 8552310-4 (Version None)
Quarter: 2012Q3

REPORT INFORMATION
  Report Type: 
  Country: None (occurrence: None)
  Receive Date: 20120718
  Receipt Date: 20120704
  Transmission Date: 20120928
  Serious: Yes (Other)
  Sender: FDA-Public Use
  Company Number: 2012AP002049

PATIENT
  Age: 55 Year
  Sex: Female

DRUGS (4)
  1. ZOLEDRONIC ACID [Suspect]
     Indication: OSTEOPOROSIS
     Dosage: 5 MG; UNKNOWN; IVDRP; UNKNOWN
     Route: 041
     Dates: start: 20090201, end: 20100201
  2. COLECALCIFEROL (COLECALCIFEROL) [Concomitant]
  3. CALCIUM CARBONATE [Concomitant]
  4. ALENDRONATE SODIUM [Suspect]
     Indication: OSTEOPOROSIS
     Dosage: 70 MG; UNKNOWN; PO; QW
     Route: 048
     Dates: start: 20060101, end: 20090101

REACTIONS (7)
  - STRESS FRACTURE [None]
  - FALL [None]
  - HYPOPHOSPHATASIA [None]
  - WRIST FRACTURE [None]
  - FEMUR FRACTURE [None]
  - HYPERPHOSPHATAEMIA [None]
  - TREATMENT NONCOMPLIANCE [None]
